FAERS Safety Report 5950246-6 (Version None)
Quarter: 2008Q4

REPORT INFORMATION
  Report Type: 
  Country: None (occurrence: None)
  Receive Date: 20081112
  Receipt Date: 20081103
  Transmission Date: 20090506
  Serious: Yes (Other)
  Sender: FDA-Public Use
  Company Number: US-TEVA-179881USA

PATIENT
  Sex: Female
  Weight: 106.3 kg

DRUGS (5)
  1. GABAPENTIN [Suspect]
     Indication: NEUROPATHY PERIPHERAL
     Route: 048
     Dates: start: 20020101, end: 20080901
  2. MORPHINE SULFATE INJ [Concomitant]
  3. LISINOPRIL [Concomitant]
  4. TRAZODONE HCL [Concomitant]
     Indication: INSOMNIA
  5. ALPRAZOLAM [Concomitant]
     Dosage: 3 TIMES DAILT AS NEEDED

REACTIONS (3)
  - NEUROPATHY PERIPHERAL [None]
  - RESORPTION BONE INCREASED [None]
  - TENDON RUPTURE [None]
